FAERS Safety Report 4895983-X (Version None)
Quarter: 2006Q1

REPORT INFORMATION
  Report Type: 
  Country: None (occurrence: None)
  Receive Date: 20060125
  Receipt Date: 20060119
  Transmission Date: 20060701
  Serious: Yes (Hospitalization)
  Sender: FDA-Public Use
  Company Number: GXBR2006US00504

PATIENT
  Age: 57 Year
  Sex: Female
  Weight: 98.4 kg

DRUGS (9)
  1. METOPROLOL TARTRATE [Suspect]
     Indication: ARRHYTHMIA
     Dosage: 25 MG,  BID, ORAL
     Route: 048
     Dates: start: 20040607, end: 20050402
  2. METOPROLOL TARTRATE [Suspect]
     Indication: ARRHYTHMIA
     Dosage: 25 MG,  BID, ORAL
     Route: 048
     Dates: start: 20050505, end: 20051201
  3. CLONIDINE [Concomitant]
  4. LASIX [Concomitant]
  5. POTASSIUM CHLORIDE [Concomitant]
  6. OXYCODONE (OXYCODONE) [Concomitant]
  7. XANAX [Concomitant]
  8. MAGNESIUM SALICYLATE (MAGNESIUM SALICYLATE) [Concomitant]
  9. SEROQUEL [Concomitant]

REACTIONS (5)
  - HALLUCINATIONS, MIXED [None]
  - INSOMNIA [None]
  - MOOD ALTERED [None]
  - NERVOUSNESS [None]
  - PSYCHOTIC DISORDER [None]
